FAERS Safety Report 11358888 (Version 1)
Quarter: 2015Q3

REPORT INFORMATION
  Report Type: Spontaneous
  Country: DE (occurrence: DE)
  Receive Date: 20150807
  Receipt Date: 20150807
  Transmission Date: 20151125
  Serious: Yes (Congenital Anomaly, Other)
  Sender: FDA-Public Use
  Company Number: DE-TEVA-582783GER

PATIENT
  Age: 0 Day
  Sex: Female
  Weight: 2.43 kg

DRUGS (4)
  1. RHOPHYLAC [Concomitant]
     Active Substance: HUMAN RHO(D) IMMUNE GLOBULIN
     Indication: PROPHYLAXIS AGAINST RH ISOIMMUNISATION
     Route: 064
     Dates: start: 20150107, end: 20150107
  2. FEMIBION [Concomitant]
     Active Substance: VITAMINS
     Indication: PROPHYLAXIS OF NEURAL TUBE DEFECT
     Route: 064
     Dates: start: 20140724, end: 20150219
  3. BISOPROLOL [Suspect]
     Active Substance: BISOPROLOL
     Indication: CARDIAC DISORDER
     Dosage: IN THE BEGINNING 5 MG/D LATER REDUCTION TO 2.5 MG/D
     Route: 064
     Dates: start: 20140604, end: 20150220
  4. LOSARTAN. [Suspect]
     Active Substance: LOSARTAN
     Indication: CARDIAC DISORDER
     Dosage: 10 MILLIGRAM DAILY;
     Route: 064
     Dates: start: 20140604, end: 20140731

REACTIONS (7)
  - Respiratory disorder neonatal [Recovered/Resolved]
  - Umbilical hernia [Unknown]
  - Foetal exposure during pregnancy [Unknown]
  - Atrial septal defect [Unknown]
  - Talipes [Recovered/Resolved with Sequelae]
  - Patent ductus arteriosus [Unknown]
  - Small for dates baby [Recovered/Resolved]

NARRATIVE: CASE EVENT DATE: 20150220
